FAERS Safety Report 16020890 (Version 23)
Quarter: 2023Q2

REPORT INFORMATION
  Report Type: Spontaneous
  Country: CA (occurrence: CA)
  Receive Date: 20190301
  Receipt Date: 20230606
  Transmission Date: 20230722
  Serious: Yes (Death, Hospitalization, Other)
  Sender: FDA-Public Use
  Company Number: CA-AUROBINDO-AUR-APL-2019-010743

PATIENT
  Age: 54 Year
  Sex: Male

DRUGS (41)
  1. EFAVIRENZ [Interacting]
     Active Substance: EFAVIRENZ
     Indication: HIV infection
     Dosage: 400 MILLIGRAM, TWO TIMES A DAY
     Route: 065
  2. EFAVIRENZ [Interacting]
     Active Substance: EFAVIRENZ
     Dosage: UNK
     Route: 048
  3. LAMIVUDINE [Interacting]
     Active Substance: LAMIVUDINE
     Indication: HIV infection
     Dosage: UNK
     Route: 048
  4. LAMIVUDINE [Interacting]
     Active Substance: LAMIVUDINE
     Dosage: UNK
     Route: 005
  5. QUETIAPINE [Interacting]
     Active Substance: QUETIAPINE
     Indication: Bipolar disorder
     Dosage: UNK
     Route: 048
  6. QUETIAPINE [Interacting]
     Active Substance: QUETIAPINE
     Indication: Bipolar disorder
     Dosage: 400 MILLIGRAM, TWO TIMES A DAY
     Route: 048
  7. SERTRALINE [Interacting]
     Active Substance: SERTRALINE HYDROCHLORIDE
     Indication: Bipolar disorder
     Dosage: 1 DOSAGE FORM, ONCE A DAY
     Route: 065
  8. SERTRALINE [Interacting]
     Active Substance: SERTRALINE HYDROCHLORIDE
     Dosage: UNK
     Route: 048
  9. SERTRALINE [Interacting]
     Active Substance: SERTRALINE HYDROCHLORIDE
     Dosage: 400 MILLIGRAM, TWO TIMES A DAY
     Route: 065
  10. SERTRALINE [Interacting]
     Active Substance: SERTRALINE HYDROCHLORIDE
     Indication: Bipolar disorder
     Dosage: UNK
     Route: 048
  11. SERTRALINE [Interacting]
     Active Substance: SERTRALINE HYDROCHLORIDE
     Dosage: UNK
     Route: 065
  12. ATAZANAVIR [Suspect]
     Active Substance: ATAZANAVIR
     Indication: HIV infection
     Dosage: UNK
     Route: 048
  13. ATAZANAVIR SULFATE [Interacting]
     Active Substance: ATAZANAVIR SULFATE
     Indication: HIV infection
     Dosage: UNK
     Route: 005
  14. BUPROPION [Suspect]
     Active Substance: BUPROPION
     Indication: Bipolar disorder
     Dosage: UNK
     Route: 048
  15. BUPROPION HYDROCHLORIDE [Interacting]
     Active Substance: BUPROPION HYDROCHLORIDE
     Indication: Bipolar disorder
     Dosage: UNK
     Route: 048
  16. CLONAZEPAM [Suspect]
     Active Substance: CLONAZEPAM
     Indication: Bipolar disorder
     Dosage: UNK
     Route: 048
  17. ISENTRESS [Interacting]
     Active Substance: RALTEGRAVIR POTASSIUM
     Indication: HIV infection
     Dosage: 400 MILLIGRAM, TWO TIMES A DAY
     Route: 048
  18. ISENTRESS [Interacting]
     Active Substance: RALTEGRAVIR POTASSIUM
     Dosage: 1 DOSAGE FORM, ONCE A DAY
     Route: 048
  19. KALETRA [Interacting]
     Active Substance: LOPINAVIR\RITONAVIR
     Indication: HIV infection
     Dosage: UNK
     Route: 048
  20. LAMIVUDINE\ZIDOVUDINE [Interacting]
     Active Substance: LAMIVUDINE\ZIDOVUDINE
     Indication: Product used for unknown indication
     Dosage: UNK
     Route: 065
  21. LOPINAVIR\RITONAVIR [Interacting]
     Active Substance: LOPINAVIR\RITONAVIR
     Indication: HIV infection
     Dosage: UNK
     Route: 048
  22. LOPINAVIR\RITONAVIR [Interacting]
     Active Substance: LOPINAVIR\RITONAVIR
     Dosage: UNK
     Route: 065
  23. RALTEGRAVIR [Interacting]
     Active Substance: RALTEGRAVIR
     Indication: HIV infection
     Dosage: 400 MILLIGRAM, TWO TIMES A DAY
     Route: 048
  24. RALTEGRAVIR [Interacting]
     Active Substance: RALTEGRAVIR
     Dosage: 400 MICROGRAM, TWO TIMES A DAY
     Route: 048
  25. RALTEGRAVIR [Interacting]
     Active Substance: RALTEGRAVIR
     Dosage: UNK
     Route: 065
  26. RALTEGRAVIR POTASSIUM [Interacting]
     Active Substance: RALTEGRAVIR POTASSIUM
     Indication: HIV infection
     Dosage: 400 MILLIGRAM, TWO TIMES A DAY
     Route: 048
  27. RALTEGRAVIR POTASSIUM [Interacting]
     Active Substance: RALTEGRAVIR POTASSIUM
     Dosage: 400 MILLILITER, ONCE A DAY
     Route: 048
  28. RALTEGRAVIR POTASSIUM [Interacting]
     Active Substance: RALTEGRAVIR POTASSIUM
     Dosage: 2 DOSAGE FORM, ONCE A DAY
     Route: 048
  29. REYATAZ [Interacting]
     Active Substance: ATAZANAVIR SULFATE
     Indication: HIV infection
     Dosage: UNK
     Route: 065
  30. RIVOTRIL [Interacting]
     Active Substance: CLONAZEPAM
     Indication: Bipolar disorder
     Dosage: UNK
     Route: 048
  31. SUSTIVA [Interacting]
     Active Substance: EFAVIRENZ
     Indication: HIV infection
     Dosage: 400 MILLIGRAM, TWO TIMES A DAY
     Route: 048
  32. SUSTIVA [Interacting]
     Active Substance: EFAVIRENZ
     Indication: HIV infection
     Dosage: 400 MILLIGRAM, TWO TIMES A DAY
     Route: 048
  33. ATAZANAVIR [Interacting]
     Active Substance: ATAZANAVIR
     Indication: HIV infection
     Dosage: UNK
     Route: 048
  34. VALPROIC ACID [Interacting]
     Active Substance: VALPROIC ACID
     Indication: Bipolar disorder
     Dosage: UNK
     Route: 048
  35. WELLBUTRIN XL [Interacting]
     Active Substance: BUPROPION HYDROCHLORIDE
     Indication: Bipolar disorder
     Dosage: UNK
     Route: 048
  36. ZOPICLONE [Interacting]
     Active Substance: ZOPICLONE
     Indication: Bipolar disorder
     Dosage: UNK
     Route: 048
  37. BUPROPION HYDROCHLORIDE [Concomitant]
     Active Substance: BUPROPION HYDROCHLORIDE
     Indication: Product used for unknown indication
     Dosage: UNK
     Route: 065
  38. ENFUVIRTIDE [Concomitant]
     Active Substance: ENFUVIRTIDE
     Indication: HIV infection
     Dosage: UNK
     Route: 048
  39. ENFUVIRTIDE [Concomitant]
     Active Substance: ENFUVIRTIDE
     Dosage: UNK
     Route: 058
  40. ENFUVIRTIDE [Concomitant]
     Active Substance: ENFUVIRTIDE
     Indication: Product used for unknown indication
     Dosage: UNK
     Route: 065
  41. ENFUVIRTIDE [Concomitant]
     Active Substance: ENFUVIRTIDE
     Indication: HIV infection
     Dosage: UNK
     Route: 058

REACTIONS (7)
  - Depression [Fatal]
  - Loss of personal independence in daily activities [Fatal]
  - Drug interaction [Fatal]
  - Prescribed overdose [Fatal]
  - Intentional product use issue [Fatal]
  - Incorrect route of product administration [Fatal]
  - Product use in unapproved indication [Fatal]
